FAERS Safety Report 4315283-6 (Version None)
Quarter: 2004Q1

REPORT INFORMATION
  Report Type: 
  Country: None (occurrence: None)
  Receive Date: 20040309
  Receipt Date: 20040225
  Transmission Date: 20041129
  Serious: Yes (Hospitalization)
  Sender: FDA-Public Use
  Company Number: CA-SHR-04-021840

PATIENT
  Age: 46 Year
  Sex: Female

DRUGS (27)
  1. BETASERON [Suspect]
     Indication: MULTIPLE SCLEROSIS
     Dosage: 8 MIU, EVERY 2D, SUBCUTANEOUS
     Route: 058
     Dates: start: 19960203
  2. THEO-DUR [Suspect]
     Dosage: 300 MG, 2X/DAY
     Dates: end: 20040201
  3. PREVACID [Concomitant]
  4. TOPAMAX /AUS/ [Concomitant]
  5. TOPIRMATE [Concomitant]
  6. LASIX /SCH/FUROSEMIDE SODIUM) [Concomitant]
  7. GRAVOL TAB [Concomitant]
  8. VENTOLIN /00139501 [Concomitant]
  9. ESTRADIOL [Concomitant]
  10. ATROVENT [Concomitant]
  11. VITAMIN D NOS (VITAMIN D NOS) [Concomitant]
  12. ZANAFLEX [Concomitant]
  13. PREPULSID /SWE/ (CISAPRIDE) [Concomitant]
  14. VITAMIN B12 INJECTION [Concomitant]
  15. COLACE (DOCUSATE SODIUM) [Concomitant]
  16. ACTONEL/USA/RISEDRONATE SODIUM) [Concomitant]
  17. SENOKOT [Concomitant]
  18. SLOW-K [Concomitant]
  19. SYNTHROID [Concomitant]
  20. HYDROCORTISON CREAM [Concomitant]
  21. SEROQUEL/UNK/ (QUETIAPINE FUMARATE) [Concomitant]
  22. TEMAZEPAM [Concomitant]
  23. LORAZEPAM [Concomitant]
  24. CLONAZEPAM [Concomitant]
  25. ADVAIR DISKUS (FLUTICASONE PROPIONATE, SALMETEROL XINAFOATE) [Concomitant]
  26. SINGULAIR ^MERCK^ (MONTELUKAST SODIUM) [Concomitant]
  27. MIACALCIN [Concomitant]

REACTIONS (4)
  - CONVULSION [None]
  - DRUG TOXICITY [None]
  - MULTIPLE SCLEROSIS RELAPSE [None]
  - TOXIC SHOCK SYNDROME [None]
